FAERS Safety Report 5736891-1 (Version None)
Quarter: 2008Q2

REPORT INFORMATION
  Report Type: 
  Country: None (occurrence: None)
  Receive Date: 20080509
  Receipt Date: 20080507
  Transmission Date: 20081010
  Serious: Yes (Hospitalization)
  Sender: FDA-Public Use
  Company Number: 2008SP007730

PATIENT
  Age: 56 Year
  Sex: Female
  Weight: 52.5 kg

DRUGS (10)
  1. TEMODAL [Suspect]
     Indication: ANAPLASTIC ASTROCYTOMA
     Dosage: 150 MG/M2; QD; PO; 200 MG/M2; QD; PO; 200 MG/M2; QD; PO
     Route: 048
     Dates: start: 20061106, end: 20061110
  2. TEMODAL [Suspect]
     Indication: ANAPLASTIC ASTROCYTOMA
     Dosage: 150 MG/M2; QD; PO; 200 MG/M2; QD; PO; 200 MG/M2; QD; PO
     Route: 048
     Dates: start: 20061204, end: 20061208
  3. TEMODAL [Suspect]
     Indication: ANAPLASTIC ASTROCYTOMA
     Dosage: 150 MG/M2; QD; PO; 200 MG/M2; QD; PO; 200 MG/M2; QD; PO
     Route: 048
     Dates: start: 20070102, end: 20070105
  4. DEPAKENE [Concomitant]
  5. PRIMPERAN TAB [Concomitant]
  6. NAVOBAN [Concomitant]
  7. NAUZELIN [Concomitant]
  8. PHENOBAL [Concomitant]
  9. MAGNESIUM OXIDE [Concomitant]
  10. EXCEGRAN [Concomitant]

REACTIONS (4)
  - ACTIVITIES OF DAILY LIVING IMPAIRED [None]
  - HYDROCEPHALUS [None]
  - NAUSEA [None]
  - NEOPLASM PROGRESSION [None]
